FAERS Safety Report 7040102-7 (Version None)
Quarter: 2010Q4

REPORT INFORMATION
  Report Type: 
  Country: None (occurrence: None)
  Receive Date: 20101012
  Receipt Date: 20100930
  Transmission Date: 20110411
  Serious: Yes (Hospitalization)
  Sender: FDA-Public Use
  Company Number: PHHO2010DE13393

PATIENT
  Age: 68 Year
  Sex: Male
  Weight: 76 kg

DRUGS (6)
  1. ZOLEDRONIC ACID [Suspect]
     Indication: METASTASES TO BONE
     Dosage: 4 MG, EVERY 4 WEEKS
     Dates: start: 20080401
  2. PREDNISONE [Concomitant]
  3. LEUPROLIDE ACETATE [Concomitant]
  4. CYMBALTA [Concomitant]
  5. CALCIUM [Concomitant]
  6. ELIGARD [Concomitant]

REACTIONS (2)
  - JAW OPERATION [None]
  - OSTEONECROSIS OF JAW [None]
